FAERS Safety Report 7736860-6 (Version None)
Quarter: 2011Q3

REPORT INFORMATION
  Report Type: 
  Country: None (occurrence: None)
  Receive Date: 20110908
  Receipt Date: 20110829
  Transmission Date: 20111222
  Serious: Yes (Other)
  Sender: FDA-Public Use
  Company Number: PHHY2011AR77134

PATIENT
  Sex: Female

DRUGS (4)
  1. SYMBICORT [Concomitant]
  2. OMEPRAZOLE [Concomitant]
  3. ONBREZ [Suspect]
     Indication: CHRONIC OBSTRUCTIVE PULMONARY DISEASE
     Dosage: 150 UG, QD
     Dates: start: 20110815, end: 20110816
  4. ONBREZ [Suspect]
     Indication: RESPIRATORY FAILURE

REACTIONS (3)
  - THROAT TIGHTNESS [None]
  - HYPERSENSITIVITY [None]
  - MUSCLE SPASMS [None]
